FAERS Safety Report 11253563 (Version 1)
Quarter: 2015Q3

REPORT INFORMATION
  Report Type: Report from Study
  Country: CA (occurrence: None)
  Receive Date: 20150707
  Receipt Date: 20150707
  Transmission Date: 20151125
  Serious: Yes (Other)
  Sender: FDA-Public Use
  Company Number: 2015-11679

PATIENT
  Age: 64 Year
  Sex: Female

DRUGS (1)
  1. EYLEA [Suspect]
     Active Substance: AFLIBERCEPT
     Indication: NEOVASCULAR AGE-RELATED MACULAR DEGENERATION
     Route: 031
     Dates: start: 20140930

REACTIONS (4)
  - Visual field defect [None]
  - Eye disorder [None]
  - Lacrimation increased [None]
  - Product use issue [None]

NARRATIVE: CASE EVENT DATE: 20140930
